FAERS Safety Report 5706076-3 (Version None)
Quarter: 2008Q2

REPORT INFORMATION
  Report Type: 
  Country: None (occurrence: None)
  Receive Date: 20080415
  Receipt Date: 20080404
  Transmission Date: 20081010
  Serious: Yes (Life-Threatening)
  Sender: FDA-Public Use
  Company Number: IT-ROCHE-552718

PATIENT
  Age: 77 Year
  Sex: Male

DRUGS (1)
  1. ROCEPHIN [Suspect]
     Indication: DRUG USE FOR UNKNOWN INDICATION
     Route: 030
     Dates: start: 20080309, end: 20080309

REACTIONS (3)
  - CARDIAC FAILURE [None]
  - CARDIAC FAILURE ACUTE [None]
  - VENTRICULAR FIBRILLATION [None]
